FAERS Safety Report 15225729 (Version 1)
Quarter: 2018Q3

REPORT INFORMATION
  Report Type: Spontaneous
  Country: CH (occurrence: CH)
  Receive Date: 20180801
  Receipt Date: 20180801
  Transmission Date: 20181010
  Serious: Yes (Hospitalization)
  Sender: FDA-Public Use
  Company Number: CH-AMGEN-CHESP2018101704

PATIENT
  Age: 49 Year
  Sex: Male

DRUGS (3)
  1. FIRMAGON [Concomitant]
     Active Substance: DEGARELIX ACETATE
     Dosage: 1 KBQ, CYCLICAL
     Route: 041
     Dates: start: 20180413
  2. TAXOTERE [Concomitant]
     Active Substance: DOCETAXEL
     Dosage: 1 KBQ, CYCLICAL
     Route: 041
     Dates: start: 20180506
  3. NEUPOGEN [Suspect]
     Active Substance: FILGRASTIM
     Indication: PRODUCT USED FOR UNKNOWN INDICATION
     Dosage: 1 KBQ, QD
     Route: 058
     Dates: start: 20180607, end: 20180608

REACTIONS (2)
  - Pyrexia [Recovered/Resolved]
  - Chills [Recovered/Resolved]

NARRATIVE: CASE EVENT DATE: 20180608
